FAERS Safety Report 23923779 (Version 1)
Quarter: 2024Q2

REPORT INFORMATION
  Report Type: Spontaneous
  Country: CH (occurrence: CH)
  Receive Date: 20240531
  Receipt Date: 20240531
  Transmission Date: 20240716
  Serious: Yes (Hospitalization, Other)
  Sender: FDA-Public Use
  Company Number: CH-SUN PHARMACEUTICAL INDUSTRIES LTD-2024R1-448885

PATIENT
  Age: 73 Year
  Sex: Male

DRUGS (2)
  1. APIXABAN [Suspect]
     Active Substance: APIXABAN
     Indication: Prophylaxis
     Route: 065
  2. ATORVASTATIN [Suspect]
     Active Substance: ATORVASTATIN
     Indication: Prophylaxis
     Route: 065

REACTIONS (5)
  - Septic embolus [Unknown]
  - Subarachnoid haemorrhage [Unknown]
  - Cutibacterium acnes infection [Unknown]
  - Condition aggravated [Unknown]
  - Haemorrhagic infarction [Unknown]
